FAERS Safety Report 18239437 (Version 1)
Quarter: 2020Q3

REPORT INFORMATION
  Report Type: Spontaneous
  Country: CN (occurrence: CN)
  Receive Date: 20200907
  Receipt Date: 20200907
  Transmission Date: 20201103
  Serious: Yes (Hospitalization, Other)
  Sender: FDA-Public Use
  Company Number: CN-ROCHE-2672264

PATIENT
  Age: 47 Year
  Sex: Male
  Weight: 45 kg

DRUGS (8)
  1. PREDNISONE ACETATE [Concomitant]
     Active Substance: PREDNISONE ACETATE
     Indication: KIDNEY TRANSPLANT REJECTION
     Dates: start: 20090101
  2. CELLCEPT [Suspect]
     Active Substance: MYCOPHENOLATE MOFETIL\MYCOPHENOLATE MOFETIL HYDROCHLORIDE
     Indication: KIDNEY TRANSPLANT REJECTION
     Route: 048
     Dates: start: 20090101
  3. CELLCEPT [Suspect]
     Active Substance: MYCOPHENOLATE MOFETIL\MYCOPHENOLATE MOFETIL HYDROCHLORIDE
     Route: 048
     Dates: start: 20200709
  4. TRIMEBUTINE MALEATE [Concomitant]
     Active Substance: TRIMEBUTINE MALEATE
  5. TACROLIMUS. [Concomitant]
     Active Substance: TACROLIMUS
     Indication: KIDNEY TRANSPLANT REJECTION
     Route: 048
     Dates: start: 20090101
  6. MIZORIBINE [Concomitant]
     Active Substance: MIZORIBINE
     Indication: KIDNEY TRANSPLANT REJECTION
     Route: 048
     Dates: start: 20200701
  7. CLOSTRIDIUM BUTYRICUM [Concomitant]
     Active Substance: CLOSTRIDIUM BUTYRICUM SPORES STRAIN M-55
  8. MONTMORILLONITE [Concomitant]
     Active Substance: MONTMORILLONITE

REACTIONS (2)
  - Renal failure [Unknown]
  - Diarrhoea [Recovered/Resolved]

NARRATIVE: CASE EVENT DATE: 2019
